FAERS Safety Report 5936439-2 (Version None)
Quarter: 2008Q4

REPORT INFORMATION
  Report Type: 
  Country: None (occurrence: None)
  Receive Date: 20081030
  Receipt Date: 20081020
  Transmission Date: 20090506
  Serious: Yes (Other)
  Sender: FDA-Public Use
  Company Number: US-BAYER-200836244NA

PATIENT
  Age: 21 Year
  Sex: Male
  Weight: 59 kg

DRUGS (1)
  1. MAGNEVIST [Suspect]
     Indication: CONVULSION
     Dosage: TOTAL DAILY DOSE: 12 ML
     Route: 042
     Dates: start: 20081017, end: 20081017

REACTIONS (4)
  - NASAL CONGESTION [None]
  - NAUSEA [None]
  - PHARYNGEAL OEDEMA [None]
  - SNEEZING [None]
